FAERS Safety Report 5887812-2 (Version None)
Quarter: 2008Q3

REPORT INFORMATION
  Report Type: 
  Country: None (occurrence: None)
  Receive Date: 20080918
  Receipt Date: 20080908
  Transmission Date: 20090109
  Serious: Yes (Other)
  Sender: FDA-Public Use
  Company Number: US-ABBOTT-08P-163-0474731-00

PATIENT
  Sex: Female
  Weight: 79.45 kg

DRUGS (2)
  1. LUPRON DEPOT [Suspect]
     Indication: MENORRHAGIA
     Route: 050
     Dates: start: 20070101
  2. LUPRON DEPOT [Suspect]
     Indication: UTERINE LEIOMYOMA

REACTIONS (8)
  - APHASIA [None]
  - ENDODONTIC PROCEDURE [None]
  - MIGRAINE [None]
  - REGURGITATION [None]
  - ROTATOR CUFF SYNDROME [None]
  - SKIN NODULE [None]
  - SPINAL FUSION SURGERY [None]
  - WEIGHT DECREASED [None]
